FAERS Safety Report 23410963 (Version 1)
Quarter: 2024Q1

REPORT INFORMATION
  Report Type: Spontaneous
  Country: US (occurrence: None)
  Receive Date: 20240116
  Receipt Date: 20240116
  Transmission Date: 20240410
  Serious: No
  Sender: FDA-Public Use
  Company Number: None

PATIENT
  Age: 66 Year
  Sex: Female
  Weight: 48.6 kg

DRUGS (4)
  1. PAXLOVID [Suspect]
     Active Substance: NIRMATRELVIR\RITONAVIR
     Indication: COVID-19
     Dosage: OTHER QUANTITY : 3 TABLET(S);?FREQUENCY : TWICE A DAY;?
     Route: 048
  2. CLARITIN [Concomitant]
     Active Substance: LORATADINE
  3. CALCIUM [Concomitant]
  4. NIACINAMIDE [Concomitant]
     Active Substance: NIACINAMIDE

REACTIONS (6)
  - Insomnia [None]
  - Agitation [None]
  - Dysgeusia [None]
  - Pain [None]
  - Prescribed overdose [None]
  - Product expiration date issue [None]

NARRATIVE: CASE EVENT DATE: 20240116
